FAERS Safety Report 25433712 (Version 1)
Quarter: 2025Q2

REPORT INFORMATION
  Report Type: Spontaneous
  Country: CA (occurrence: CA)
  Receive Date: 20250613
  Receipt Date: 20250613
  Transmission Date: 20250717
  Serious: Yes (Other)
  Sender: PFIZER
  Company Number: CA-PFIZER INC-202500120000

PATIENT
  Age: 49 Year
  Sex: Female

DRUGS (3)
  1. CIBINQO [Suspect]
     Active Substance: ABROCITINIB
     Indication: Dermatitis atopic
     Dosage: 200 MG, 1X/DAY
     Route: 048
     Dates: start: 2025
  2. ELIDEL [Concomitant]
     Active Substance: PIMECROLIMUS
  3. XOLAIR [Concomitant]
     Active Substance: OMALIZUMAB
     Dates: start: 202402

REACTIONS (1)
  - Colitis ulcerative [Unknown]
